FAERS Safety Report 10732685 (Version 2)
Quarter: 2015Q1

REPORT INFORMATION
  Report Type: Spontaneous
  Country: TW (occurrence: TW)
  Receive Date: 20150123
  Receipt Date: 20150123
  Transmission Date: 20150721
  Serious: Yes (Other)
  Sender: FDA-Public Use
  Company Number: PHHY2015TW005824

PATIENT
  Age: 28 Year
  Sex: Female

DRUGS (7)
  1. METHYLPHENIDATE [Suspect]
     Active Substance: METHYLPHENIDATE
     Indication: AUTISM
     Route: 065
  2. RISPERIDONE. [Suspect]
     Active Substance: RISPERIDONE
     Indication: SCHIZOPHRENIA
     Route: 065
  3. ZIPRASIDONE [Suspect]
     Active Substance: ZIPRASIDONE
     Indication: AUTISM
     Route: 065
  4. FLUOXETINE [Suspect]
     Active Substance: FLUOXETINE\FLUOXETINE HYDROCHLORIDE
     Indication: AUTISM
     Route: 065
  5. OLANZAPINE. [Suspect]
     Active Substance: OLANZAPINE
     Indication: SCHIZOPHRENIA
     Route: 065
  6. HALOPERIDOL. [Suspect]
     Active Substance: HALOPERIDOL
     Indication: SCHIZOPHRENIA
     Route: 065
  7. QUETIAPINE [Suspect]
     Active Substance: QUETIAPINE
     Indication: SCHIZOPHRENIA
     Route: 065

REACTIONS (6)
  - Noninfective gingivitis [Unknown]
  - Social avoidant behaviour [Unknown]
  - Oral discomfort [Unknown]
  - Dental caries [Unknown]
  - Decreased eye contact [Unknown]
  - Drug resistance [Unknown]
